FAERS Safety Report 8812102 (Version 1)
Quarter: 2012Q4

REPORT INFORMATION
  Report Type: 
  Country: US (occurrence: US)
  Receive Date: 20120927
  Receipt Date: 20120927
  Transmission Date: 20130627
  Serious: Yes (Other)
  Sender: FDA-Public Use
  Company Number: PHHY2012US082539

PATIENT
  Age: 73 Year
  Sex: Female

DRUGS (2)
  1. ASCRIPTIN - UNKNOWN FORMULA [Suspect]
     Indication: CARDIOVASCULAR INSUFFICIENCY
     Dosage: 1 DF, every day
     Route: 048
  2. GARLIC PILLS [Concomitant]
     Indication: BLOOD CHOLESTEROL
     Route: 048

REACTIONS (3)
  - Glaucoma [Not Recovered/Not Resolved]
  - Incorrect drug administration duration [Unknown]
  - Limb asymmetry [None]
